FAERS Safety Report 10417755 (Version 1)
Quarter: 2014Q2

REPORT INFORMATION
  Report Type: Spontaneous
  Country: US (occurrence: None)
  Receive Date: 20140609
  Receipt Date: 20140609
  Transmission Date: 20141212
  Serious: No
  Sender: FDA-Public Use
  Company Number: 2014TUS001630

PATIENT
  Age: 63 Year
  Sex: Female

DRUGS (6)
  1. BRINTELLIX [Suspect]
     Indication: MAJOR DEPRESSION
     Route: 048
     Dates: start: 20140207, end: 20140228
  2. ABILIFY (ARIPIPRAZOLE) [Concomitant]
  3. DEPLIN (CALCIUM LEVOMEFOLATE) [Concomitant]
  4. LAMICTAL (LAMOTRIGINE) [Concomitant]
  5. KLONOPIN (CLONAZEPAM) [Concomitant]
  6. CYMBALTA (DULOXETINE HYDROCHLORIDE) [Concomitant]

REACTIONS (4)
  - Anxiety [None]
  - Palpitations [None]
  - Hypersomnia [None]
  - Constipation [None]
